FAERS Safety Report 10375696 (Version 1)
Quarter: 2014Q3

REPORT INFORMATION
  Report Type: Report from Study
  Country: ID (occurrence: ID)
  Receive Date: 20140811
  Receipt Date: 20140811
  Transmission Date: 20150326
  Serious: Yes (Other)
  Sender: FDA-Public Use
  Company Number: ID-ROCHE-1445518

PATIENT

DRUGS (2)
  1. BEVACIZUMAB [Suspect]
     Active Substance: BEVACIZUMAB
     Indication: DIABETIC RETINOPATHY
     Route: 050
  2. LASER PHOTOCOAGULATION [Suspect]
     Active Substance: DEVICE
     Indication: DIABETIC RETINOPATHY
     Route: 065

REACTIONS (6)
  - Vitreous haemorrhage [Unknown]
  - Retinal detachment [Unknown]
  - Glaucoma [Unknown]
  - Hyphaema [Unknown]
  - Off label use [Unknown]
  - Lenticular opacities [Unknown]
